FAERS Safety Report 5757664-X (Version None)
Quarter: 2008Q2

REPORT INFORMATION
  Report Type: 
  Country: None (occurrence: None)
  Receive Date: 20080529
  Receipt Date: 20080521
  Transmission Date: 20081010
  Serious: Yes (Other)
  Sender: FDA-Public Use
  Company Number: 2008013598

PATIENT
  Sex: Female

DRUGS (7)
  1. CETIRIZINE HCL [Suspect]
     Dosage: 3 TABLETS WEEKLY, ORAL
     Route: 048
  2. PROPULSID [Suspect]
     Dosage: 2 TABLETS DAILY, ORAL
     Route: 048
  3. BRICANYL [Suspect]
     Dosage: DAILY, INHALATION
     Route: 055
  4. FLONASE [Suspect]
     Dosage: 4 SPRAYS DAILY, NASAL
     Route: 045
  5. VITAMIN C (VITAMIN C) [Suspect]
     Dosage: 500 MG DAILY, ORAL
     Route: 048
  6. SALBUTAMOL (SALBUTAMOL) [Suspect]
     Dosage: 400 MCG DAILY
  7. FLOVENT [Suspect]
     Dosage: INHALATION
     Route: 055

REACTIONS (3)
  - ABORTION SPONTANEOUS [None]
  - DRUG EXPOSURE DURING PREGNANCY [None]
  - MATERNAL DRUGS AFFECTING FOETUS [None]
